FAERS Safety Report 15235021 (Version 2)
Quarter: 2018Q4

REPORT INFORMATION
  Report Type: Spontaneous
  Country: DE (occurrence: DE)
  Receive Date: 20180803
  Receipt Date: 20180818
  Transmission Date: 20190204
  Serious: Yes (Hospitalization)
  Sender: FDA-Public Use
  Company Number: DE-TEVA-2018-DE-932775

PATIENT
  Age: 84 Year
  Sex: Female

DRUGS (14)
  1. MELPERON ARISTO 10 MG FILMTABLETTEN [Concomitant]
     Route: 065
  2. FERRO SANOL [Concomitant]
     Active Substance: FERROUS GLYCINE SULFATE
     Route: 065
  3. VENLAFAXINE [Concomitant]
     Active Substance: VENLAFAXINE HYDROCHLORIDE
     Route: 065
  4. NOVAMINSULFON [Concomitant]
     Active Substance: METAMIZOLE
     Route: 065
  5. VENLAFAXIN 150MG [Suspect]
     Active Substance: VENLAFAXINE HYDROCHLORIDE
     Dosage: SEIT 17.1.2018: 100 TABLETTEN!!
     Route: 048
     Dates: start: 20180117
  6. BERLOSIN [Suspect]
     Active Substance: METAMIZOLE
     Indication: SEDATIVE THERAPY
     Route: 048
     Dates: start: 20171106
  7. RAMIPRIL. [Concomitant]
     Active Substance: RAMIPRIL
     Route: 065
  8. ATORVASTATIN RATIO 20 [Concomitant]
     Route: 065
  9. ASPIRIN. [Concomitant]
     Active Substance: ASPIRIN
     Route: 065
  10. MONO-EMBOLEX [Concomitant]
     Active Substance: CERTOPARIN SODIUM
     Route: 065
  11. DONEPEZIL. [Concomitant]
     Active Substance: DONEPEZIL
     Route: 065
  12. TILIDINE [Concomitant]
     Active Substance: TILIDINE
     Route: 065
  13. METOPROLOLSUCCINAT AL 47.5 [Interacting]
     Active Substance: METOPROLOL SUCCINATE
     Route: 065
  14. COTRIMOXAZOL [Concomitant]
     Active Substance: SULFAMETHOXAZOLE\TRIMETHOPRIM
     Route: 065

REACTIONS (14)
  - Drug interaction [Unknown]
  - Hypertension [Unknown]
  - Decreased appetite [Unknown]
  - Fall [Unknown]
  - Femur fracture [Unknown]
  - Constipation [Unknown]
  - Adverse drug reaction [Unknown]
  - Dry mouth [Unknown]
  - Nausea [Unknown]
  - Fatigue [Unknown]
  - Diet refusal [Recovered/Resolved]
  - Dysphagia [Unknown]
  - Somnolence [Unknown]
  - Blood cholesterol increased [Unknown]

NARRATIVE: CASE EVENT DATE: 201710
